FAERS Safety Report 9252900 (Version 1)
Quarter: 2013Q1

REPORT INFORMATION
  Report Type: Spontaneous
  Country: US (occurrence: None)
  Receive Date: 20130305
  Receipt Date: 20130305
  Transmission Date: 20140127
  Serious: Yes (Other)
  Sender: FDA-Public Use
  Company Number: 163-201880-12090886

PATIENT
  Age: 70 Year
  Sex: Female
  Weight: 97.98 kg

DRUGS (7)
  1. REVLIMID [Suspect]
     Indication: PLASMA CELL MYELOMA
     Dosage: 07/27/2012 - UNKNOWN, CAPSULE, 10 MG, 28 IN 28 D, PO
  2. CLARITAN (LORATADINE) [Concomitant]
  3. IBUPROFEN (IBUPROFEN) [Concomitant]
  4. LISINOPRIL (LISINOPRIL) [Concomitant]
  5. PENTAMIDINE (PENTAMIDINE) [Concomitant]
  6. SIMVASTATIN (SIMVASTATIN) [Concomitant]
  7. TERAZOSIN (TERAZOSIN) [Concomitant]

REACTIONS (1)
  - Febrile infection [None]
